FAERS Safety Report 7562347-X (Version None)
Quarter: 2011Q2

REPORT INFORMATION
  Report Type: 
  Country: None (occurrence: None)
  Receive Date: 20110620
  Receipt Date: 20110620
  Transmission Date: 20111010
  Serious: Yes (Other)
  Sender: FDA-Public Use
  Company Number: None

PATIENT
  Sex: Female
  Weight: 63.5036 kg

DRUGS (1)
  1. ZOLPIDEM [Suspect]
     Indication: INSOMNIA
     Dosage: 10 MG TNS. P.O.
     Route: 048
     Dates: start: 20100401, end: 20110606

REACTIONS (4)
  - DREAMY STATE [None]
  - FEELING ABNORMAL [None]
  - AMNESIA [None]
  - ROAD TRAFFIC ACCIDENT [None]
